FAERS Safety Report 6384815-9 (Version None)
Quarter: 2009Q4

REPORT INFORMATION
  Report Type: 
  Country: None (occurrence: None)
  Receive Date: 20091001
  Receipt Date: 20090923
  Transmission Date: 20100525
  Serious: Yes (Hospitalization, Other)
  Sender: FDA-Public Use
  Company Number: CA-AMGEN-KDL256686

PATIENT
  Sex: Female
  Weight: 59 kg

DRUGS (1)
  1. ENBREL [Suspect]
     Indication: RHEUMATOID ARTHRITIS
     Route: 058
     Dates: start: 20070419, end: 20080501

REACTIONS (3)
  - DEVICE RELATED INFECTION [None]
  - INFECTION [None]
  - JOINT ARTHROPLASTY [None]
